FAERS Safety Report 26196554 (Version 1)
Quarter: 2025Q4

REPORT INFORMATION
  Report Type: Other
  Country: CN (occurrence: CN)
  Receive Date: 20251224
  Receipt Date: 20251224
  Transmission Date: 20260118
  Serious: Yes (Hospitalization)
  Sender: XGEN PHARMACEUTICALS DJB, INC.
  Company Number: CN-XGen Pharmaceuticals DJB, Inc.-2190821

PATIENT
  Age: 69 Year
  Sex: Male

DRUGS (1)
  1. DEHYDRATED ALCOHOL [Suspect]
     Active Substance: ALCOHOL

REACTIONS (4)
  - Oesophageal fistula [Recovered/Resolved]
  - Pneumopericardium [Recovered/Resolved]
  - Pericardial effusion [Recovered/Resolved]
  - Pericardiocutaneous fistula [Recovered/Resolved]
